FAERS Safety Report 13531573 (Version 1)
Quarter: 2017Q2

REPORT INFORMATION
  Report Type: Report from Study
  Country: US (occurrence: US)
  Receive Date: 20170510
  Receipt Date: 20170510
  Transmission Date: 20170830
  Serious: Yes (Hospitalization)
  Sender: FDA-Public Use
  Company Number: US-LEO PHARMA-279047

PATIENT
  Sex: Female
  Weight: 128 kg

DRUGS (1)
  1. PROTOPIC [Suspect]
     Active Substance: TACROLIMUS
     Indication: DERMATITIS ATOPIC
     Dosage: 0.1 %, AS NEEDED
     Route: 061
     Dates: start: 20080115

REACTIONS (3)
  - Hypertension [Unknown]
  - Off label use [Unknown]
  - Paraganglion neoplasm malignant [Recovered/Resolved]

NARRATIVE: CASE EVENT DATE: 20130611
